FAERS Safety Report 14232068 (Version 2)
Quarter: 2018Q1

REPORT INFORMATION
  Report Type: Spontaneous
  Country: BR (occurrence: BR)
  Receive Date: 20171128
  Receipt Date: 20180104
  Transmission Date: 20180508
  Serious: Yes (Other)
  Sender: FDA-Public Use
  Company Number: BR-PFIZER INC-2017506324

PATIENT
  Age: 32 Year
  Sex: Female

DRUGS (4)
  1. RISPERIDON [Concomitant]
     Active Substance: RISPERIDONE
     Dosage: UNK
     Dates: start: 2017, end: 201712
  2. FRONTAL [Suspect]
     Active Substance: ALPRAZOLAM
     Indication: INSOMNIA
  3. FRONTAL [Suspect]
     Active Substance: ALPRAZOLAM
     Indication: DEPRESSION
     Dosage: 2 MG, DAILY (ONE TABLET AT NIGHT)
     Dates: start: 2015
  4. CARBOLITHIUM [Concomitant]
     Active Substance: LITHIUM CARBONATE
     Dosage: UNK
     Dates: start: 2017, end: 201712

REACTIONS (2)
  - Pituitary tumour benign [Unknown]
  - Blood prolactin increased [Unknown]

NARRATIVE: CASE EVENT DATE: 201711
